FAERS Safety Report 4785089-2 (Version None)
Quarter: 2005Q3

REPORT INFORMATION
  Report Type: 
  Country: None (occurrence: None)
  Receive Date: 20050928
  Receipt Date: 20050920
  Transmission Date: 20060218
  Serious: Yes (Life-Threatening, Other)
  Sender: FDA-Public Use
  Company Number: HQWYE548520SEP05

PATIENT
  Age: 70 Year
  Sex: Female

DRUGS (1)
  1. INDERAL [Suspect]
     Indication: HYPERTENSION
     Dosage: 20 MG 1X PER 1 DAY ORAL
     Route: 048
     Dates: end: 20050829

REACTIONS (2)
  - ANAPHYLACTIC SHOCK [None]
  - CHEST PAIN [None]
